FAERS Safety Report 20790621 (Version 1)
Quarter: 2022Q2

REPORT INFORMATION
  Report Type: Spontaneous
  Country: IT (occurrence: IT)
  Receive Date: 20220505
  Receipt Date: 20220505
  Transmission Date: 20220721
  Serious: Yes (Death)
  Sender: FDA-Public Use
  Company Number: IT-PFIZER INC-202200629243

PATIENT
  Age: 6 Decade

DRUGS (2)
  1. PEMBROLIZUMAB [Suspect]
     Active Substance: PEMBROLIZUMAB
     Indication: Clear cell renal cell carcinoma
     Dosage: 400 MG, CYCLIC (EVERY 6 WEEKS)
     Dates: start: 20210301
  2. INLYTA [Suspect]
     Active Substance: AXITINIB
     Indication: Clear cell renal cell carcinoma
     Dosage: 5 MG, 2X/DAY
     Dates: start: 20210301

REACTIONS (4)
  - Off label use [Unknown]
  - Blood pressure increased [Unknown]
  - Death [Fatal]
  - Neoplasm progression [Unknown]
